FAERS Safety Report 8877665 (Version 2)
Quarter: 2012Q4

REPORT INFORMATION
  Report Type: 
  Country: CA (occurrence: CA)
  Receive Date: 20121024
  Receipt Date: 20121031
  Transmission Date: 20130627
  Serious: Yes (Hospitalization, Other)
  Sender: FDA-Public Use
  Company Number: PHHY2011CA88509

PATIENT
  Age: 8 Year
  Sex: Male

DRUGS (3)
  1. EXJADE [Suspect]
     Indication: CONGENITAL ANAEMIA
     Dosage: 375 mg, UNK
     Route: 048
     Dates: start: 201104
  2. EXJADE [Suspect]
     Indication: IRON OVERLOAD
     Dosage: 500 mg, daily
     Route: 048
     Dates: start: 201106, end: 20120912
  3. EXJADE [Suspect]
     Dosage: UNK UKN, UNK
     Route: 048

REACTIONS (11)
  - Malaise [Unknown]
  - Nausea [Unknown]
  - Vomiting [Unknown]
  - Hypokalaemia [Recovered/Resolved]
  - Hypophosphataemia [Recovered/Resolved]
  - Renal tubular acidosis [Recovered/Resolved]
  - Dehydration [Recovered/Resolved]
  - Pollakiuria [Recovered/Resolved]
  - Renal disorder [Recovered/Resolved]
  - Renal impairment [Recovered/Resolved]
  - Gastrointestinal disorder [Unknown]
